FAERS Safety Report 4325172-9 (Version None)
Quarter: 2004Q1

REPORT INFORMATION
  Report Type: 
  Country: None (occurrence: None)
  Receive Date: 20040326
  Receipt Date: 20030617
  Transmission Date: 20041129
  Serious: Yes (Hospitalization)
  Sender: FDA-Public Use
  Company Number: US-MERCK-0306USA02101

PATIENT
  Age: 73 Year
  Sex: Female
  Weight: 68 kg

DRUGS (8)
  1. ACETAMINOPHEN [Concomitant]
  2. ALLOPURINOL [Concomitant]
     Indication: GOUT
     Dates: end: 20010901
  3. ATENOLOL [Concomitant]
     Dates: start: 20010101
  4. ATENOLOL [Concomitant]
     Dates: start: 20010501
  5. DIURETIC (UNSPECIFIED) [Suspect]
  6. VIOXX [Suspect]
     Indication: RHEUMATOID ARTHRITIS
     Route: 048
     Dates: start: 20010321, end: 20010401
  7. VIOXX [Suspect]
     Route: 048
     Dates: start: 20010401, end: 20010531
  8. VITAMINS (UNSPECIFIED) [Concomitant]

REACTIONS (36)
  - ACUTE PULMONARY OEDEMA [None]
  - ARTHRALGIA [None]
  - BLOOD PRESSURE INCREASED [None]
  - BREAST MICROCALCIFICATION [None]
  - CARDIAC FAILURE CONGESTIVE [None]
  - DRUG HYPERSENSITIVITY [None]
  - DRUG INEFFECTIVE [None]
  - DYSPHORIA [None]
  - DYSURIA [None]
  - EMOTIONAL DISTRESS [None]
  - EXOSTOSIS [None]
  - FALL [None]
  - HYPERNATRAEMIA [None]
  - HYPERTENSIVE CRISIS [None]
  - HYPERTENSIVE HEART DISEASE [None]
  - ILIAC ARTERY STENOSIS [None]
  - MITRAL VALVE INCOMPETENCE [None]
  - MUSCULOSKELETAL PAIN [None]
  - MYOCARDIAL INFARCTION [None]
  - NAUSEA [None]
  - NEPHRITIS INTERSTITIAL [None]
  - POLLAKIURIA [None]
  - POSTNASAL DRIP [None]
  - PULMONARY EMBOLISM [None]
  - PULMONARY OEDEMA [None]
  - PYURIA [None]
  - RENAL ARTERY STENOSIS [None]
  - RENAL CYST [None]
  - RENAL FAILURE [None]
  - RENAL IMPAIRMENT [None]
  - RENAL TUBULAR NECROSIS [None]
  - SINUSITIS [None]
  - SKIN LESION [None]
  - URINARY TRACT INFECTION [None]
  - VASCULAR CALCIFICATION [None]
  - VENTRICULAR HYPERTROPHY [None]
